FAERS Safety Report 19722652 (Version 1)
Quarter: 2021Q3

REPORT INFORMATION
  Report Type: Spontaneous
  Country: FR (occurrence: FR)
  Receive Date: 20210819
  Receipt Date: 20210819
  Transmission Date: 20211014
  Serious: Yes (Hospitalization)
  Sender: FDA-Public Use
  Company Number: FR-PFIZER INC-202101017512

PATIENT
  Age: 69 Year
  Sex: Male
  Weight: 79 kg

DRUGS (3)
  1. KARDEGIC [Suspect]
     Active Substance: ASPIRIN DL-LYSINE
     Indication: THROMBOSIS
     Dosage: 75 MG, 1X/DAY
     Route: 048
     Dates: end: 20210707
  2. INNOHEP [Suspect]
     Active Substance: TINZAPARIN SODIUM
     Indication: PORTAL VEIN THROMBOSIS
     Dosage: 0.8 ML, 1X/DAY
     Route: 059
     Dates: start: 202008, end: 20210707
  3. ZIRABEV [Suspect]
     Active Substance: BEVACIZUMAB-BVZR
     Indication: HEPATOCELLULAR CARCINOMA
     Dosage: 15 MG/KG, FREQ:21 DAYS
     Route: 042
     Dates: start: 20210527, end: 20210621

REACTIONS (2)
  - Haematoma [Recovering/Resolving]
  - Off label use [Unknown]

NARRATIVE: CASE EVENT DATE: 20210527
